FAERS Safety Report 5021258-4 (Version None)
Quarter: 2006Q2

REPORT INFORMATION
  Report Type: 
  Country: None (occurrence: None)
  Receive Date: 20060605
  Receipt Date: 20060520
  Transmission Date: 20061013
  Serious: Yes (Hospitalization)
  Sender: FDA-Public Use
  Company Number: 163-C5013-06050629

PATIENT
  Age: 82 Year
  Sex: Female
  Weight: 59.5 kg

DRUGS (2)
  1. CC-5013 (LENALIDOMIDE) (CAPSULES) [Suspect]
     Indication: MULTIPLE MYELOMA
     Dosage: 25 MG, DAILY ON DAYS 1-21 Q29D, ORAL
     Route: 048
     Dates: start: 20060227, end: 20060514
  2. DEXAMETHASONE [Suspect]
     Indication: MULTIPLE MYELOMA
     Dosage: 40 MG, DAILY ON DAYS 1-4, 9-12, 17-20 Q28D, ORAL
     Route: 048
     Dates: start: 20060227, end: 20060514

REACTIONS (8)
  - BLOOD CALCIUM DECREASED [None]
  - BLOOD POTASSIUM DECREASED [None]
  - CYSTITIS ESCHERICHIA [None]
  - DEHYDRATION [None]
  - ESCHERICHIA BACTERAEMIA [None]
  - FANCONI SYNDROME [None]
  - RENAL TUBULAR ACIDOSIS [None]
  - UROSEPSIS [None]
